FAERS Safety Report 15333174 (Version 1)
Quarter: 2018Q4

REPORT INFORMATION
  Report Type: Spontaneous
  Country: NL (occurrence: NL)
  Receive Date: 20180830
  Receipt Date: 20180830
  Transmission Date: 20190204
  Serious: Yes (Other)
  Sender: FDA-Public Use
  Company Number: NL-TEVA-2018-NL-949606

PATIENT
  Age: 69 Year
  Sex: Male
  Weight: 73 kg

DRUGS (4)
  1. ATORVASTATINE TABLET, 40 MG (MILLIGRAM) [Suspect]
     Active Substance: ATORVASTATIN
     Indication: BLOOD CHOLESTEROL
     Dosage: 40 MILLIGRAM DAILY; 1 X PER DAG
     Route: 065
     Dates: start: 20100901, end: 20180501
  2. METFORMINE 500 [Concomitant]
     Active Substance: METFORMIN HYDROCHLORIDE
     Dosage: 1000 MILLIGRAM DAILY;
  3. ASCAL 100MG [Concomitant]
  4. COVERSYL ARG 10MG [Concomitant]

REACTIONS (3)
  - Muscle spasms [Recovered/Resolved]
  - Muscle rupture [Recovered/Resolved]
  - Blood glucose increased [Recovered/Resolved]

NARRATIVE: CASE EVENT DATE: 20150101
